FAERS Safety Report 8854312 (Version 1)
Quarter: 2012Q4

REPORT INFORMATION
  Report Type: Spontaneous
  Country: US (occurrence: None)
  Receive Date: 20121019
  Receipt Date: 20121019
  Transmission Date: 20130627
  Serious: Yes (Other)
  Sender: FDA-Public Use
  Company Number: None

PATIENT
  Age: 76 Year
  Sex: Male
  Weight: 66.23 kg

DRUGS (4)
  1. ATIVAN [Suspect]
     Indication: PROPHYLAXIS
     Dates: start: 20121017, end: 20121018
  2. ATIVAN [Suspect]
     Indication: COMBATIVE REACTION
     Dates: start: 20121017, end: 20121018
  3. ATIVAN [Suspect]
     Indication: PROPHYLAXIS
     Dates: start: 20121018, end: 20121018
  4. ATIVAN [Suspect]
     Indication: COMBATIVE REACTION
     Dates: start: 20121018, end: 20121018

REACTIONS (1)
  - Tremor [None]
